FAERS Safety Report 7412289-5 (Version None)
Quarter: 2011Q2

REPORT INFORMATION
  Report Type: 
  Country: None (occurrence: None)
  Receive Date: 20110413
  Receipt Date: 20110401
  Transmission Date: 20111010
  Serious: Yes (Hospitalization)
  Sender: FDA-Public Use
  Company Number: US-AMGEN-USASP2011017634

PATIENT
  Age: 54 Year
  Sex: Female

DRUGS (1)
  1. ENBREL [Suspect]
     Indication: RHEUMATOID ARTHRITIS
     Dosage: 25 MG, 2 TIMES/WK
     Dates: start: 19990101

REACTIONS (7)
  - CORONARY ARTERY DISEASE [None]
  - RHEUMATOID NODULE [None]
  - SCOLIOSIS [None]
  - METATARSAL EXCISION [None]
  - PAIN [None]
  - JOINT ARTHROPLASTY [None]
  - RHEUMATOID ARTHRITIS [None]
